FAERS Safety Report 9206671 (Version 2)
Quarter: 2013Q4

REPORT INFORMATION
  Report Type: Spontaneous
  Country: US (occurrence: US)
  Receive Date: 20130403
  Receipt Date: 20131231
  Transmission Date: 20140711
  Serious: Yes (Other)
  Sender: FDA-Public Use
  Company Number: US-BAYER-2013-040689

PATIENT
  Age: 46 Year
  Sex: Female

DRUGS (6)
  1. YAZ [Suspect]
     Dosage: UNK
     Dates: start: 20050428
  2. YASMIN [Suspect]
     Dosage: UNK
     Dates: start: 20050428
  3. OCELLA [Suspect]
     Dosage: UNK
     Dates: start: 20050428
  4. AZITHROMYCIN [Concomitant]
     Dosage: 250 MG, UNK
  5. LUNESTA [Concomitant]
     Dosage: 3 MG, UNK
  6. CITALOPRAM [Concomitant]
     Dosage: 20 MG, UNK

REACTIONS (9)
  - Gallbladder injury [None]
  - Cholecystitis chronic [None]
  - Deep vein thrombosis [None]
  - Injury [None]
  - Pain [None]
  - General physical health deterioration [None]
  - Emotional distress [None]
  - Anxiety [None]
  - Pain [None]
